FAERS Safety Report 18675605 (Version 1)
Quarter: 2020Q4

REPORT INFORMATION
  Report Type: Other
  Country: US (occurrence: US)
  Receive Date: 20201229
  Receipt Date: 20201229
  Transmission Date: 20210114
  Serious: Yes (Other)
  Sender: FDA-Public Use
  Company Number: US-ROCHE-2735906

PATIENT

DRUGS (3)
  1. ACETAMINOPHEN. [Suspect]
     Active Substance: ACETAMINOPHEN
     Indication: ANAESTHESIA
     Route: 065
  2. DIAZEPAM. [Suspect]
     Active Substance: DIAZEPAM
     Indication: ANAESTHESIA
     Route: 065
  3. OXYCODONE [Suspect]
     Active Substance: OXYCODONE
     Indication: ANAESTHESIA
     Route: 065

REACTIONS (5)
  - Nausea [Unknown]
  - Vomiting [Unknown]
  - Postoperative wound infection [Unknown]
  - Oxygen saturation decreased [Unknown]
  - Pruritus [Unknown]
